FAERS Safety Report 4389113-0 (Version None)
Quarter: 2004Q2

REPORT INFORMATION
  Report Type: 
  Country: None (occurrence: None)
  Receive Date: 20040624
  Receipt Date: 20040609
  Transmission Date: 20050107
  Serious: Yes (Other)
  Sender: FDA-Public Use
  Company Number: 24189

PATIENT
  Age: 84 Year
  Sex: Female

DRUGS (1)
  1. ALDARA [Suspect]
     Indication: MALIGNANT MELANOMA
     Dosage: 1 IN 1 DAY(S) ), TOPICAL
     Route: 061
     Dates: start: 20040101, end: 20040101

REACTIONS (2)
  - DEPRESSION [None]
  - SKIN NECROSIS [None]
